FAERS Safety Report 8226138-9 (Version None)
Quarter: 2012Q1

REPORT INFORMATION
  Report Type: 
  Country: None (occurrence: None)
  Receive Date: 20120307
  Receipt Date: 20100121
  Transmission Date: 20120608
  Serious: No
  Sender: FDA-Public Use
  Company Number: PHEH2009US16636

PATIENT
  Age: 57 Year
  Sex: Male
  Weight: 82.7 kg

DRUGS (2)
  1. AFINITOR [Suspect]
     Indication: RENAL CELL CARCINOMA
     Dosage: 10MG, DAILY, ORAL, 5MG, DAILY, ORAL
     Route: 048
     Dates: start: 20090928
  2. AFINITOR [Suspect]
     Indication: RENAL CELL CARCINOMA
     Dosage: 10MG, DAILY, ORAL, 5MG, DAILY, ORAL
     Route: 048
     Dates: end: 20091116

REACTIONS (11)
  - CHILLS [None]
  - NAUSEA [None]
  - VOMITING [None]
  - FATIGUE [None]
  - BLOOD CHOLESTEROL INCREASED [None]
  - EPISTAXIS [None]
  - HYPERHIDROSIS [None]
  - HEADACHE [None]
  - COUGH [None]
  - DIARRHOEA [None]
  - MOUTH ULCERATION [None]
